FAERS Safety Report 5523747-2 (Version None)
Quarter: 2007Q4

REPORT INFORMATION
  Report Type: 
  Country: None (occurrence: None)
  Receive Date: 20071121
  Receipt Date: 20071112
  Transmission Date: 20080405
  Serious: Yes (Hospitalization)
  Sender: FDA-Public Use
  Company Number: US-GENENTECH-250718

PATIENT
  Sex: Female
  Weight: 82.54 kg

DRUGS (4)
  1. BEVACIZUMAB [Suspect]
     Indication: BREAST CANCER
     Dosage: 5 MG/KG, 1/WEEK
     Dates: start: 20070827, end: 20071015
  2. TRASTUZUMAB [Suspect]
     Indication: BREAST CANCER
     Dosage: 2 MG/KG, 1/WEEK
     Dates: start: 20070827, end: 20071015
  3. ABI-007 [Concomitant]
     Indication: BREAST CANCER
     Dosage: 100 MG/M2, 1/WEEK
  4. CARBOPLATIN [Concomitant]
     Indication: BREAST CANCER
     Dosage: 767 MG, SINGLE
     Dates: start: 20070827

REACTIONS (3)
  - CHOLELITHIASIS [None]
  - HIATUS HERNIA [None]
  - OESOPHAGITIS [None]
